FAERS Safety Report 9458719 (Version 1)
Quarter: 2013Q3

REPORT INFORMATION
  Report Type: Spontaneous
  Country: BR (occurrence: BR)
  Receive Date: 20130814
  Receipt Date: 20130814
  Transmission Date: 20140515
  Serious: Yes (Other)
  Sender: FDA-Public Use
  Company Number: BR-SANOFI-AVENTIS-2013SA080077

PATIENT
  Age: 41 Year
  Sex: Male
  Weight: 55 kg

DRUGS (6)
  1. LANTUS [Suspect]
     Indication: TYPE 1 DIABETES MELLITUS
     Dosage: 20 IU AT 3 AM AND 10 IU AT 3 PM
     Route: 058
     Dates: start: 201206
  2. APIDRA [Suspect]
     Indication: TYPE 1 DIABETES MELLITUS
     Dosage: 3-4 IU DAILY AFTER BREAKFAST LUNCH SNACK AND DINNER
     Route: 058
     Dates: start: 2013
  3. INSULIN PEN NOS [Concomitant]
  4. INSULIN PEN NOS [Concomitant]
  5. CAPTOPRIL [Concomitant]
     Indication: BLOOD PRESSURE
     Dates: start: 2012
  6. ASPIRIN [Concomitant]
     Indication: ANTICOAGULANT THERAPY
     Dates: start: 2012

REACTIONS (15)
  - Infarction [Recovered/Resolved]
  - Retinal detachment [Recovered/Resolved]
  - Blindness unilateral [Recovered/Resolved]
  - Hypertension [Recovered/Resolved]
  - Blood glucose fluctuation [Unknown]
  - Drug administration error [Unknown]
  - Hyperglycaemia [Recovering/Resolving]
  - Pain in extremity [Recovering/Resolving]
  - Muscle spasms [Recovering/Resolving]
  - Thirst [Recovering/Resolving]
  - Pollakiuria [Recovering/Resolving]
  - Hypoglycaemia [Recovering/Resolving]
  - Delirium [Recovering/Resolving]
  - Oral disorder [Recovering/Resolving]
  - Hyperhidrosis [Recovering/Resolving]
